FAERS Safety Report 7534666-4 (Version None)
Quarter: 2011Q2

REPORT INFORMATION
  Report Type: 
  Country: None (occurrence: None)
  Receive Date: 20110609
  Receipt Date: 20100510
  Transmission Date: 20111010
  Serious: Yes (Death, Life-Threatening, Other)
  Sender: FDA-Public Use
  Company Number: PHHY2010JP02376

PATIENT
  Sex: Female

DRUGS (10)
  1. MITOMYCIN [Suspect]
     Indication: NEOPLASM MALIGNANT
     Dosage: 2 MG, QD
     Dates: start: 20080227
  2. XYLOCAINE [Suspect]
     Indication: LOCAL ANAESTHESIA
     Dosage: 100 MG, QD
     Dates: start: 20080227
  3. FEMARA [Concomitant]
     Dosage: 2.5 MG, UNK
     Route: 048
     Dates: start: 20070416
  4. PROMAC [Concomitant]
     Dosage: 150 MG, UNK
     Route: 048
     Dates: start: 20070416
  5. CGP 42446 [Suspect]
     Indication: METASTASES TO BONE
     Dosage: 4 MG, UNK
     Route: 042
     Dates: start: 20070417, end: 20080209
  6. OXYCONTIN [Concomitant]
     Dosage: 10 MG, UNK
     Route: 048
     Dates: start: 20071002, end: 20080227
  7. AMARYL [Concomitant]
     Dosage: 2 MG, UNK
     Route: 048
     Dates: start: 20071002, end: 20080227
  8. FURTULON [Suspect]
     Dosage: 800 MG, UNK
     Route: 048
     Dates: start: 20070502, end: 20070507
  9. HOKUNALIN [Concomitant]
     Dosage: 2 MG, UNK
     Route: 048
     Dates: start: 20071002, end: 20080227
  10. OMEPRAZOLE [Concomitant]
     Dosage: 20 MG, UNK
     Route: 048
     Dates: start: 20071002, end: 20080227

REACTIONS (4)
  - DEATH [None]
  - NEOPLASM MALIGNANT [None]
  - ANAPHYLACTIC SHOCK [None]
  - DRUG ERUPTION [None]
